FAERS Safety Report 18190623 (Version 1)
Quarter: 2020Q3

REPORT INFORMATION
  Report Type: Spontaneous
  Country: US (occurrence: US)
  Receive Date: 20200824
  Receipt Date: 20200824
  Transmission Date: 20201103
  Serious: Yes (Other)
  Sender: FDA-Public Use
  Company Number: US-PURDUE-USA-2020-0162398

PATIENT
  Sex: Female

DRUGS (8)
  1. DILAUDID [Suspect]
     Active Substance: HYDROMORPHONE HYDROCHLORIDE
     Indication: MULTIPLE SCLEROSIS
  2. OXYCODONE/ ACETAMINOPHEN TABLETS [Suspect]
     Active Substance: ACETAMINOPHEN\OXYCODONE HYDROCHLORIDE
     Indication: CARDIAC DISORDER
     Dosage: UNK
     Route: 048
     Dates: start: 2000
  3. HYDROMORPHONE HCL ORAL SOLUTION (RHODES) [Suspect]
     Active Substance: HYDROMORPHONE HYDROCHLORIDE
     Indication: MULTIPLE SCLEROSIS
  4. DILAUDID [Suspect]
     Active Substance: HYDROMORPHONE HYDROCHLORIDE
     Indication: CARDIAC DISORDER
     Dosage: UNK
     Route: 048
     Dates: start: 2000
  5. HYDROMORPHONE TABLETS [Suspect]
     Active Substance: HYDROMORPHONE
     Indication: CARDIAC DISORDER
     Dosage: UNK
     Route: 048
     Dates: start: 2000
  6. HYDROMORPHONE TABLETS [Suspect]
     Active Substance: HYDROMORPHONE
     Indication: MULTIPLE SCLEROSIS
  7. HYDROMORPHONE HCL ORAL SOLUTION (RHODES) [Suspect]
     Active Substance: HYDROMORPHONE HYDROCHLORIDE
     Indication: CARDIAC DISORDER
     Dosage: UNK
     Route: 048
     Dates: start: 2000
  8. OXYCODONE/ ACETAMINOPHEN TABLETS [Suspect]
     Active Substance: ACETAMINOPHEN\OXYCODONE HYDROCHLORIDE
     Indication: MULTIPLE SCLEROSIS

REACTIONS (2)
  - Dependence [Unknown]
  - Road traffic accident [Unknown]
